FAERS Safety Report 14772547 (Version 2)
Quarter: 2018Q4

REPORT INFORMATION
  Report Type: Report from Study
  Country: DE (occurrence: DE)
  Receive Date: 20180418
  Receipt Date: 20181113
  Transmission Date: 20190204
  Serious: Yes (Hospitalization)
  Sender: FDA-Public Use
  Company Number: DE-ACCORD-065739

PATIENT
  Age: 7 Decade
  Sex: Female

DRUGS (12)
  1. METAMIZOLE/METAMIZOLE MAGNESIUM/METAMIZOLE SODIUM/METAMIZOLE SODIUM MONOHYDRATE [Concomitant]
     Dosage: DOSAGE FORM: UNSPECIFIED
  2. JODTHYROX [Concomitant]
     Active Substance: LEVOTHYROXINE SODIUM\POTASSIUM IODIDE
     Dosage: DOSAGE FORM: UNSPECIFIED
  3. MACROGOL/MACROGOL STEARATE [Concomitant]
     Dosage: DOSAGE FORM: UNSPECIFIED
  4. ACETYLCYSTEINE. [Concomitant]
     Active Substance: ACETYLCYSTEINE
     Dosage: DOSAGE FORM: UNSPECIFIED
  5. ZOPICLONE [Concomitant]
     Active Substance: ZOPICLONE
     Dosage: DOSAGE FORM: UNSPECIFIED
  6. PANTOPRAZOLE [Concomitant]
     Active Substance: PANTOPRAZOLE
     Dosage: DOSAGE FORM: UNSPECIFIED
  7. PREDNISOLONE. [Concomitant]
     Active Substance: PREDNISOLONE
     Dosage: DOSAGE FORM: UNSPECIFIED
  8. FOLIC ACID. [Concomitant]
     Active Substance: FOLIC ACID
     Dosage: DOSAGE FORM: UNSPECIFIED
  9. ALENDRONATE SODIUM/ALENDRONIC ACID [Concomitant]
     Dosage: DOSAGE FORM: UNSPECIFIED
  10. CALCIUM CARBONATE. [Concomitant]
     Active Substance: CALCIUM CARBONATE
     Dosage: DOSAGE FORM: UNSPECIFIED
  11. METHOTREXATE. [Suspect]
     Active Substance: METHOTREXATE
     Indication: RHEUMATOID ARTHRITIS
     Dosage: DOSAGE FORM: UNSPECIFIED
     Route: 065
     Dates: start: 201303, end: 201703
  12. SIMPONI [Suspect]
     Active Substance: GOLIMUMAB
     Indication: RHEUMATOID ARTHRITIS
     Route: 058
     Dates: start: 201603, end: 201702

REACTIONS (4)
  - Pneumonia [Not Recovered/Not Resolved]
  - Arthrodesis [Not Recovered/Not Resolved]
  - Arthritis [Not Recovered/Not Resolved]
  - Sinusitis [Not Recovered/Not Resolved]

NARRATIVE: CASE EVENT DATE: 20170215
